FAERS Safety Report 6039957-4 (Version None)
Quarter: 2009Q1

REPORT INFORMATION
  Report Type: 
  Country: None (occurrence: None)
  Receive Date: 20090116
  Receipt Date: 20071101
  Transmission Date: 20090719
  Serious: No
  Sender: FDA-Public Use
  Company Number: US-BRISTOL-MYERS SQUIBB COMPANY-13967096

PATIENT
  Age: 37 Year
  Sex: Female
  Weight: 80 kg

DRUGS (4)
  1. ABILIFY [Suspect]
     Indication: BIPOLAR DISORDER
     Route: 048
     Dates: start: 20071029
  2. DEPAKOTE ER [Concomitant]
  3. AMBIEN [Concomitant]
  4. ATIVAN [Concomitant]

REACTIONS (2)
  - INCREASED APPETITE [None]
  - RESTLESSNESS [None]
